FAERS Safety Report 24903490 (Version 1)
Quarter: 2025Q1

REPORT INFORMATION
  Report Type: Spontaneous
  Country: US (occurrence: US)
  Receive Date: 20250130
  Receipt Date: 20250130
  Transmission Date: 20250408
  Serious: No
  Sender: AMNEAL
  Company Number: US-AMNEAL PHARMACEUTICALS-2024-AMRX-02210

PATIENT
  Sex: Female

DRUGS (1)
  1. TRIAMCINOLONE ACETONIDE [Suspect]
     Active Substance: TRIAMCINOLONE ACETONIDE
     Indication: Product used for unknown indication
     Route: 008
     Dates: start: 20240503

REACTIONS (10)
  - Thirst [Unknown]
  - Dry mouth [Unknown]
  - Eye pain [Unknown]
  - Vision blurred [Unknown]
  - Feeling jittery [Unknown]
  - Anger [Unknown]
  - Hypomania [Unknown]
  - Visual impairment [Unknown]
  - Insomnia [Unknown]
  - Headache [Unknown]

NARRATIVE: CASE EVENT DATE: 20240503
